FAERS Safety Report 5703918-2 (Version None)
Quarter: 2008Q2

REPORT INFORMATION
  Report Type: 
  Country: None (occurrence: None)
  Receive Date: 20080409
  Receipt Date: 20080328
  Transmission Date: 20081010
  Serious: Yes (Other)
  Sender: FDA-Public Use
  Company Number: 025168

PATIENT
  Age: 21 Year
  Sex: Female

DRUGS (7)
  1. CLARAVIS [Suspect]
     Indication: ACNE
     Dosage: 40 MG, QD, ORAL : 40 MG, BID, ORAL
     Route: 048
     Dates: start: 20080206, end: 20080304
  2. CLARAVIS [Suspect]
     Indication: ACNE
     Dosage: 40 MG, QD, ORAL : 40 MG, BID, ORAL
     Route: 048
     Dates: start: 20080107
  3. BACTRIM [Concomitant]
  4. IBUPROFEN [Concomitant]
  5. NORTRIPTYLINE HCL [Concomitant]
  6. ORAL CONTRACEPTIVE NOS (ORAL CONTRACEPTIVE NOS) [Concomitant]
  7. VITAMIN B [Concomitant]

REACTIONS (12)
  - ANXIETY [None]
  - CONVULSION [None]
  - CYST [None]
  - DEPRESSION [None]
  - FEELING HOT [None]
  - HEADACHE [None]
  - HYPERHIDROSIS [None]
  - MUSCLE SPASTICITY [None]
  - MYOPIA [None]
  - RETINAL DEGENERATION [None]
  - SINUS POLYP [None]
  - STRESS [None]
